FAERS Safety Report 16205077 (Version 2)
Quarter: 2019Q3

REPORT INFORMATION
  Report Type: Spontaneous
  Country: US (occurrence: US)
  Receive Date: 20190416
  Receipt Date: 20190716
  Transmission Date: 20191004
  Serious: No
  Sender: FDA-Public Use
  Company Number: US-CHILTERN-US-2019-000378

PATIENT
  Age: 64 Year
  Sex: Female

DRUGS (4)
  1. LUMIGAN [Concomitant]
     Active Substance: BIMATOPROST
     Dosage: UNK, BOTH EYES QD
     Route: 047
  2. RHOPRESSA [Suspect]
     Active Substance: NETARSUDIL MESYLATE
     Dosage: 2 GTT, QD BOTH EYES
     Route: 047
     Dates: start: 20181003, end: 20181004
  3. COSOPT [Concomitant]
     Active Substance: DORZOLAMIDE HYDROCHLORIDE\TIMOLOL MALEATE
     Dosage: UNK, BOTH EYES BID
     Route: 047
  4. RHOPRESSA [Suspect]
     Active Substance: NETARSUDIL MESYLATE
     Indication: GLAUCOMA
     Dosage: 1 GTT, QD LEFT EYE IN THE AM
     Route: 047
     Dates: start: 20181001, end: 20181002

REACTIONS (7)
  - Lacrimation increased [Recovering/Resolving]
  - Abnormal sensation in eye [Recovering/Resolving]
  - Conjunctival hyperaemia [Recovered/Resolved]
  - Eye discharge [Recovering/Resolving]
  - Vision blurred [Recovering/Resolving]
  - Off label use [Unknown]
  - Dry eye [Recovering/Resolving]

NARRATIVE: CASE EVENT DATE: 20181003
